FAERS Safety Report 10310362 (Version 3)
Quarter: 2014Q4

REPORT INFORMATION
  Report Type: Report from Study
  Country: US (occurrence: US)
  Receive Date: 20140717
  Receipt Date: 20141007
  Transmission Date: 20150528
  Serious: Yes (Hospitalization, Other)
  Sender: FDA-Public Use
  Company Number: US-BAYER-2014-078234

PATIENT
  Age: 67 Year
  Sex: Male

DRUGS (2)
  1. STIVARGA [Suspect]
     Active Substance: REGORAFENIB
     Indication: COLON CANCER
     Dosage: 4 X 40 MG
     Route: 048
     Dates: start: 20140421
  2. STIVARGA [Suspect]
     Active Substance: REGORAFENIB
     Indication: COLON CANCER
     Dosage: 4 X 40 MG
     Route: 048
     Dates: start: 20140424, end: 20140519

REACTIONS (3)
  - Metabolic encephalopathy [None]
  - Hepatic enzyme increased [None]
  - Colon cancer [None]
